FAERS Safety Report 20694057 (Version 8)
Quarter: 2022Q2

REPORT INFORMATION
  Report Type: Report from Study
  Country: US (occurrence: None)
  Receive Date: 20220411
  Receipt Date: 20220516
  Transmission Date: 20220721
  Serious: Yes (Death, Life-Threatening, Hospitalization)
  Sender: FDA-Public Use
  Company Number: US-ROCHE-3071027

PATIENT
  Age: 85 Year
  Sex: Female

DRUGS (71)
  1. TENECTEPLASE [Suspect]
     Active Substance: TENECTEPLASE
     Indication: Thrombolysis
     Dosage: DATE OF FIRST DOSE OF STUDY DRUG: 05/APR/2022.?ON THE SAME DAY AT 3:18 AM, HE RECEIVED MOST RECENT D
     Route: 042
     Dates: start: 20220405
  2. AMLODIPINE [Concomitant]
     Active Substance: AMLODIPINE BESYLATE
     Indication: Hypertension
     Dates: start: 20220409, end: 20220409
  3. AMLODIPINE [Concomitant]
     Active Substance: AMLODIPINE BESYLATE
     Dates: start: 20220410
  4. CHOLECALCIFEROL [Concomitant]
     Active Substance: CHOLECALCIFEROL
     Indication: Vitamin D deficiency
     Dosage: 1000 U
     Route: 048
     Dates: start: 20220412, end: 20220421
  5. CLOPIDOGREL [Concomitant]
     Active Substance: CLOPIDOGREL BISULFATE
     Indication: Coronary artery disease
     Route: 048
     Dates: start: 20130927, end: 20220405
  6. CLOPIDOGREL [Concomitant]
     Active Substance: CLOPIDOGREL BISULFATE
     Indication: Ischaemic stroke
     Dates: start: 20220407
  7. LISINOPRIL AND HYDROCHLOROTHIAZIDE [Concomitant]
     Active Substance: HYDROCHLOROTHIAZIDE\LISINOPRIL
     Indication: Hypertension
     Dosage: 1 TABLET
     Route: 048
  8. METOPROLOL TARTRATE [Concomitant]
     Active Substance: METOPROLOL TARTRATE
     Indication: Hypertension
     Route: 048
  9. METOPROLOL TARTRATE [Concomitant]
     Active Substance: METOPROLOL TARTRATE
     Dates: start: 20220408, end: 20220408
  10. SIMVASTATIN [Concomitant]
     Active Substance: SIMVASTATIN
     Indication: Blood cholesterol increased
     Route: 048
     Dates: start: 20140203
  11. IOHEXOL [Concomitant]
     Active Substance: IOHEXOL
     Dosage: 350MG/ML
     Route: 042
     Dates: start: 20220405, end: 20220419
  12. IOHEXOL [Concomitant]
     Active Substance: IOHEXOL
     Dosage: 350MG/ML
     Route: 013
     Dates: start: 20220405, end: 20220420
  13. HEPARIN [Concomitant]
     Active Substance: HEPARIN SODIUM
     Indication: Ischaemic stroke
     Dosage: 5000 U
     Route: 013
     Dates: start: 20220405, end: 20220405
  14. HEPARIN [Concomitant]
     Active Substance: HEPARIN SODIUM
     Dosage: MEDICATION DOSE 5000 U
     Route: 058
     Dates: start: 20220406, end: 20220419
  15. VERAPAMIL [Concomitant]
     Active Substance: VERAPAMIL HYDROCHLORIDE
     Indication: Hypertension
     Route: 013
     Dates: start: 20220405, end: 20220405
  16. NITROGLYCERIN [Concomitant]
     Active Substance: NITROGLYCERIN
     Indication: Ischaemic stroke
     Route: 013
     Dates: start: 20220405, end: 20220405
  17. CALCIUM CHLORIDE [Concomitant]
     Active Substance: CALCIUM CHLORIDE
     Route: 042
     Dates: start: 20220405, end: 20220405
  18. GADOBUTROL [Concomitant]
     Active Substance: GADOBUTROL
     Route: 042
     Dates: start: 20220406, end: 20220406
  19. ACETAMINOPHEN [Concomitant]
     Active Substance: ACETAMINOPHEN
     Indication: Pain prophylaxis
     Route: 042
     Dates: start: 20220406, end: 20220406
  20. ACETAMINOPHEN [Concomitant]
     Active Substance: ACETAMINOPHEN
     Dates: start: 20220407, end: 20220420
  21. ACETAMINOPHEN [Concomitant]
     Active Substance: ACETAMINOPHEN
     Dates: start: 20220406, end: 20220420
  22. EPTIFIBATIDE [Concomitant]
     Active Substance: EPTIFIBATIDE
     Indication: Ischaemic stroke
     Dosage: 0.5 OTHER
     Route: 042
     Dates: start: 20220406
  23. EPTIFIBATIDE [Concomitant]
     Active Substance: EPTIFIBATIDE
     Dosage: 1 OTHER
     Route: 042
     Dates: start: 20220405, end: 20220405
  24. FENTANYL [Concomitant]
     Active Substance: FENTANYL
     Indication: Pain
     Route: 042
     Dates: start: 20220406, end: 20220406
  25. FENTANYL [Concomitant]
     Active Substance: FENTANYL
     Dosage: 1OTHER
     Route: 042
     Dates: start: 20220420, end: 20220420
  26. FAMOTIDINE [Concomitant]
     Active Substance: FAMOTIDINE
     Indication: Dyspepsia
     Route: 042
     Dates: start: 20220405, end: 20220406
  27. FAMOTIDINE [Concomitant]
     Active Substance: FAMOTIDINE
     Indication: Gastrooesophageal reflux disease
     Dates: start: 20220407, end: 20220408
  28. FAMOTIDINE [Concomitant]
     Active Substance: FAMOTIDINE
     Dosage: 1 OTHER
     Route: 042
     Dates: start: 20220420, end: 20220420
  29. FAMOTIDINE [Concomitant]
     Active Substance: FAMOTIDINE
     Route: 048
     Dates: start: 20220421
  30. POLYETHYLENE GLYCOL [Concomitant]
     Active Substance: POLYETHYLENE GLYCOL
     Indication: Constipation prophylaxis
     Dates: start: 20220407
  31. ASPIRIN [Concomitant]
     Active Substance: ASPIRIN
     Indication: Ischaemic stroke
     Dates: start: 20220407, end: 20220407
  32. ASPIRIN [Concomitant]
     Active Substance: ASPIRIN
     Dates: start: 20220407, end: 20220407
  33. ASPIRIN [Concomitant]
     Active Substance: ASPIRIN
     Dates: start: 20220407, end: 20220407
  34. ASPIRIN [Concomitant]
     Active Substance: ASPIRIN
     Dates: start: 20220407, end: 20220407
  35. ASPIRIN [Concomitant]
     Active Substance: ASPIRIN
     Dates: start: 20220407, end: 20220407
  36. ASPIRIN [Concomitant]
     Active Substance: ASPIRIN
     Dates: start: 20220407, end: 20220407
  37. ASPIRIN [Concomitant]
     Active Substance: ASPIRIN
     Dates: start: 20220407, end: 20220407
  38. ASPIRIN [Concomitant]
     Active Substance: ASPIRIN
     Dates: start: 20220407
  39. ASPIRIN [Concomitant]
     Active Substance: ASPIRIN
     Dates: start: 20220407, end: 20220407
  40. ASPIRIN [Concomitant]
     Active Substance: ASPIRIN
     Dates: start: 20220407, end: 20220407
  41. ASPIRIN [Concomitant]
     Active Substance: ASPIRIN
     Dates: start: 20220408
  42. SODIUM CHLORIDE [Concomitant]
     Active Substance: SODIUM CHLORIDE
     Route: 042
     Dates: start: 20220405, end: 20220409
  43. HYDRALAZINE [Concomitant]
     Active Substance: HYDRALAZINE HYDROCHLORIDE
     Indication: Hypertension
     Route: 042
     Dates: start: 20220407
  44. FUROSEMIDE [Concomitant]
     Active Substance: FUROSEMIDE
     Indication: Polyuria
     Route: 042
     Dates: start: 20220407, end: 20220408
  45. FUROSEMIDE [Concomitant]
     Active Substance: FUROSEMIDE
     Route: 042
     Dates: start: 20220409, end: 20220410
  46. PROSOURCE NO CARB [Concomitant]
     Dates: start: 20220407, end: 20220412
  47. SENNOSIDES A AND B [Concomitant]
     Active Substance: SENNOSIDES A AND B
     Indication: Constipation
     Dates: start: 20220407, end: 20220421
  48. POTASSIUM CHLORIDE [Concomitant]
     Active Substance: POTASSIUM CHLORIDE
     Dosage: 20 OTHER
     Dates: start: 20220409, end: 20220414
  49. INSULIN NOS [Concomitant]
     Active Substance: INSULIN NOS
     Indication: Glucose tolerance impaired
     Dosage: 5 U
     Route: 058
     Dates: start: 20220409
  50. LABETALOL [Concomitant]
     Active Substance: LABETALOL\LABETALOL HYDROCHLORIDE
     Indication: Hypertension
     Route: 042
     Dates: start: 20220408, end: 20220418
  51. ATORVASTATIN [Concomitant]
     Active Substance: ATORVASTATIN
     Indication: Hyperlipidaemia
     Dates: start: 20220410
  52. PROPOFOL [Concomitant]
     Active Substance: PROPOFOL
     Indication: Anaesthesia
     Dosage: 10 OTHER
     Route: 042
     Dates: start: 20220405, end: 20220405
  53. ROCURONIUM BROMIDE [Concomitant]
     Active Substance: ROCURONIUM BROMIDE
     Indication: Anaesthesia
     Dosage: 50 OTHER
     Route: 042
     Dates: start: 20220405, end: 20220405
  54. ROCURONIUM BROMIDE [Concomitant]
     Active Substance: ROCURONIUM BROMIDE
     Route: 042
     Dates: start: 20220405, end: 20220405
  55. MIDAZOLAM [Concomitant]
     Active Substance: MIDAZOLAM
     Indication: Ischaemic stroke
     Route: 042
     Dates: start: 20220405, end: 20220405
  56. LIDOCAINE [Concomitant]
     Active Substance: LIDOCAINE
     Indication: Anaesthesia
     Route: 042
     Dates: start: 20220405, end: 20220405
  57. GLYCOPYRROLATE [Concomitant]
     Active Substance: GLYCOPYRROLATE
     Indication: Anaesthesia
     Route: 042
     Dates: start: 20220405, end: 20220405
  58. LACTATED RINGERS SOLUTION [Concomitant]
     Active Substance: CALCIUM CHLORIDE\POTASSIUM CHLORIDE\SODIUM CHLORIDE\SODIUM LACTATE
     Route: 042
     Dates: start: 20220405, end: 20220405
  59. ASCORBIC ACID [Concomitant]
     Active Substance: ASCORBIC ACID
     Dates: start: 20220413, end: 20220418
  60. CARVEDILOL [Concomitant]
     Active Substance: CARVEDILOL
     Indication: Hypertension
     Dates: start: 20220410, end: 20220416
  61. CARVEDILOL [Concomitant]
     Active Substance: CARVEDILOL
     Dates: start: 20220418
  62. CEFAZOLIN [Concomitant]
     Active Substance: CEFAZOLIN
     Indication: Gastrostomy
     Dosage: 1 OTHER
     Route: 042
     Dates: start: 20220420, end: 20220420
  63. CHLORTHALIDONE [Concomitant]
     Active Substance: CHLORTHALIDONE
     Indication: Hypertension
     Dates: start: 20220420
  64. GLUCAGON HCL [Concomitant]
     Route: 042
     Dates: start: 20220420, end: 20220420
  65. LISINOPRIL [Concomitant]
     Active Substance: LISINOPRIL
     Indication: Hypertension
     Dates: start: 20220412, end: 20220421
  66. MELATONIN [Concomitant]
     Active Substance: MELATONIN
     Indication: Ischaemic stroke
     Dates: start: 20220412
  67. OXYCODONE [Concomitant]
     Active Substance: OXYCODONE
     Indication: Gastrostomy
     Dates: start: 20220420
  68. PANTOPRAZOLE [Concomitant]
     Active Substance: PANTOPRAZOLE
     Route: 042
     Dates: start: 20220414, end: 20220420
  69. PROSOURCE TF [Concomitant]
     Dates: start: 20220413, end: 20220418
  70. PROSOURCE TF [Concomitant]
     Dates: start: 20220420, end: 20220421
  71. PROSOURCE TF [Concomitant]
     Dates: start: 20220427

REACTIONS (6)
  - Haematoma [Not Recovered/Not Resolved]
  - Anaemia [Recovering/Resolving]
  - Hypotension [Recovering/Resolving]
  - Stridor [Recovering/Resolving]
  - Haemoptysis [Not Recovered/Not Resolved]
  - Death [Fatal]

NARRATIVE: CASE EVENT DATE: 20220405
